FAERS Safety Report 24707807 (Version 1)
Quarter: 2024Q4

REPORT INFORMATION
  Report Type: Spontaneous
  Country: US (occurrence: US)
  Receive Date: 20241206
  Receipt Date: 20241206
  Transmission Date: 20250115
  Serious: No
  Sender: NOVO NORDISK
  Company Number: US-NOVOPROD-1263880

PATIENT
  Sex: Male

DRUGS (1)
  1. NOVOLIN 70/30 [Suspect]
     Active Substance: INSULIN HUMAN
     Indication: Product used for unknown indication
     Dosage: 44 IU, QD
     Route: 058

REACTIONS (5)
  - Musculoskeletal stiffness [Unknown]
  - Sensory loss [Unknown]
  - Dry mouth [Unknown]
  - Pollakiuria [Unknown]
  - Blood glucose increased [Unknown]
